FAERS Safety Report 20632020 (Version 1)
Quarter: 2022Q1

REPORT INFORMATION
  Report Type: Spontaneous
  Country: US (occurrence: None)
  Receive Date: 20220324
  Receipt Date: 20220324
  Transmission Date: 20220423
  Serious: No
  Sender: FDA-Public Use
  Company Number: 2022A091086

PATIENT

DRUGS (1)
  1. SAPHNELO [Suspect]
     Active Substance: ANIFROLUMAB-FNIA
     Dosage: UNKNOWN DOSE AND FREQUENCY
     Route: 042

REACTIONS (5)
  - Nasopharyngitis [Unknown]
  - Urinary tract infection [Unknown]
  - Bronchitis [Unknown]
  - Herpes zoster [Unknown]
  - Infection [Unknown]
